FAERS Safety Report 10019682 (Version 1)
Quarter: 2014Q1

REPORT INFORMATION
  Report Type: Spontaneous
  Country: JP (occurrence: JP)
  Receive Date: 20140318
  Receipt Date: 20140318
  Transmission Date: 20141002
  Serious: Yes (Hospitalization, Other)
  Sender: FDA-Public Use
  Company Number: JP-009507513-1403JPN008488

PATIENT
  Sex: Female

DRUGS (1)
  1. FOSAMAC TABLETS 35MG [Suspect]
     Dosage: DAILY DOSE UNKNOWN ONCE A WEEK
     Route: 048

REACTIONS (3)
  - Arthropathy [Recovered/Resolved]
  - Knee operation [Unknown]
  - Tendon pain [Unknown]
